FAERS Safety Report 8091347-9 (Version None)
Quarter: 2012Q1

REPORT INFORMATION
  Report Type: 
  Country: None (occurrence: None)
  Receive Date: 20120131
  Receipt Date: 20120118
  Transmission Date: 20120608
  Serious: Yes (Hospitalization)
  Sender: FDA-Public Use
  Company Number: US-ELI_LILLY_AND_COMPANY-US201201005325

PATIENT
  Sex: Male
  Weight: 51.3 kg

DRUGS (3)
  1. HUMIRA [Concomitant]
     Dosage: UNK
     Dates: start: 20090801
  2. PROZAC [Suspect]
     Dosage: UNK
  3. PROZAC [Suspect]
     Dosage: UNK
     Dates: start: 20111001

REACTIONS (1)
  - DEPRESSION [None]
